FAERS Safety Report 8168046-8 (Version None)
Quarter: 2012Q1

REPORT INFORMATION
  Report Type: 
  Country: None (occurrence: None)
  Receive Date: 20120227
  Receipt Date: 20120220
  Transmission Date: 20120608
  Serious: Yes (Death, Other)
  Sender: FDA-Public Use
  Company Number: PHFR2012GB001040

PATIENT
  Sex: Male

DRUGS (6)
  1. CLOZARIL [Suspect]
     Dosage: 600 MG, DAILY
     Route: 048
     Dates: start: 19990101, end: 20120204
  2. POLYETHYLENE GLYCOL [Concomitant]
     Indication: CONSTIPATION
     Route: 048
     Dates: start: 20031201
  3. CLOZARIL [Suspect]
     Indication: SCHIZOPHRENIA
     Route: 048
     Dates: start: 19981111
  4. PROCYCLIDINE HYDROCHLORIDE 2MG TAB [Concomitant]
     Indication: SALIVARY HYPERSECRETION
     Dosage: 2.5 MG, DAILY
     Route: 048
     Dates: start: 20030701
  5. TAMSULOSIN HCL [Concomitant]
     Indication: URINARY RETENTION
     Dosage: 400 MG, DAILY
     Route: 048
     Dates: start: 20031201
  6. FYBOGEL [Concomitant]
     Indication: CONSTIPATION
     Dosage: 2 SACHETS DAILY
     Route: 048
     Dates: start: 20031201

REACTIONS (4)
  - GASTROINTESTINAL HYPOMOTILITY [None]
  - CARDIAC FAILURE [None]
  - BLOOD CHOLESTEROL INCREASED [None]
  - BLOOD GLUCOSE INCREASED [None]
